FAERS Safety Report 13466793 (Version 1)
Quarter: 2017Q2

REPORT INFORMATION
  Report Type: Spontaneous
  Country: US (occurrence: US)
  Receive Date: 20170420
  Receipt Date: 20170420
  Transmission Date: 20170830
  Serious: Yes (Hospitalization)
  Sender: FDA-Public Use
  Company Number: None

PATIENT
  Age: 46 Year
  Sex: Female

DRUGS (1)
  1. TIGECYCLINE 50MG PFIZER [Suspect]
     Active Substance: TIGECYCLINE
     Indication: BREAST INJURY
     Route: 042
     Dates: start: 20170321, end: 20170325

REACTIONS (2)
  - Pancreatitis acute [None]
  - Therapy cessation [None]

NARRATIVE: CASE EVENT DATE: 20170325
